FAERS Safety Report 10420462 (Version 1)
Quarter: 2014Q2

REPORT INFORMATION
  Report Type: Spontaneous
  Country: US (occurrence: None)
  Receive Date: 20140618
  Receipt Date: 20140618
  Transmission Date: 20141212
  Serious: No
  Sender: FDA-Public Use
  Company Number: 095903

PATIENT
  Sex: 0

DRUGS (1)
  1. LACOSAMIDE [Suspect]
     Dosage: CONTINUING DOSE

REACTIONS (9)
  - Malaise [None]
  - Headache [None]
  - Nightmare [None]
  - Feeling abnormal [None]
  - Asthenia [None]
  - Dizziness [None]
  - Balance disorder [None]
  - Dyspnoea [None]
  - Palpitations [None]
